FAERS Safety Report 4972122-8 (Version None)
Quarter: 2006Q2

REPORT INFORMATION
  Report Type: 
  Country: None (occurrence: None)
  Receive Date: 20060413
  Receipt Date: 20060406
  Transmission Date: 20061013
  Serious: Yes (Hospitalization)
  Sender: FDA-Public Use
  Company Number: US-ROCHE-443746

PATIENT
  Sex: Male

DRUGS (2)
  1. ACCUTANE [Suspect]
     Indication: DRUG USE FOR UNKNOWN INDICATION
     Dosage: INCREASED DOSE.
     Route: 065
     Dates: start: 20060222, end: 20060322
  2. ACCUTANE [Suspect]
     Route: 065
     Dates: end: 20060221

REACTIONS (1)
  - SUICIDAL IDEATION [None]
